FAERS Safety Report 23483596 (Version 3)
Quarter: 2024Q1

REPORT INFORMATION
  Report Type: Spontaneous
  Country: US (occurrence: US)
  Receive Date: 20240205
  Receipt Date: 20240315
  Transmission Date: 20240410
  Serious: No
  Sender: FDA-Public Use
  Company Number: US-PFIZER INC-202400032631

PATIENT
  Age: 93 Year
  Sex: Male
  Weight: 73.48 kg

DRUGS (5)
  1. VYNDAMAX [Suspect]
     Active Substance: TAFAMIDIS
     Indication: Cardiac disorder
     Dosage: 61 MG, 1X/DAY
     Dates: start: 20230601
  2. HYDROCHLOROTHIAZIDE [Concomitant]
     Active Substance: HYDROCHLOROTHIAZIDE
     Dosage: STARTED 10-12 YEARS AGO
  3. LISINOPRIL [Concomitant]
     Active Substance: LISINOPRIL
     Dosage: STARTED 10-12 YEARS AGO
  4. ELIQUIS [Concomitant]
     Active Substance: APIXABAN
     Dosage: 5 MG, 2X/DAY (STARTED: 20 YEARS)
  5. SIMVASTATIN [Concomitant]
     Active Substance: SIMVASTATIN
     Dosage: FOR SEVERAL YEARS

REACTIONS (2)
  - Feeling abnormal [Unknown]
  - Dizziness [Unknown]
